FAERS Safety Report 18479645 (Version 1)
Quarter: 2020Q4

REPORT INFORMATION
  Report Type: Spontaneous
  Country: US (occurrence: US)
  Receive Date: 20201107
  Receipt Date: 20201107
  Transmission Date: 20210114
  Serious: Yes (Hospitalization)
  Sender: FDA-Public Use
  Company Number: None

PATIENT
  Age: 73 Year
  Sex: Female
  Weight: 81.9 kg

DRUGS (16)
  1. LUCENTIS [Suspect]
     Active Substance: RANIBIZUMAB
     Indication: AGE-RELATED MACULAR DEGENERATION
     Dates: start: 20200215, end: 20201016
  2. ALPRAZOLAM. [Concomitant]
     Active Substance: ALPRAZOLAM
  3. ELIQUIS [Concomitant]
     Active Substance: APIXABAN
  4. NITROFULRATOIN [Concomitant]
  5. ONDANSETRON HCL [Concomitant]
     Active Substance: ONDANSETRON HYDROCHLORIDE
  6. PRESERVISION AREDS2 [Concomitant]
  7. FIBER SUPPLEMENT [Concomitant]
     Active Substance: DIETARY SUPPLEMENT
  8. MICROBID GENERIC [Concomitant]
  9. VITAMIN D3 [Concomitant]
     Active Substance: CHOLECALCIFEROL
  10. ZOLPIDEM [Concomitant]
     Active Substance: ZOLPIDEM TARTRATE
  11. CALCITRIOL. [Concomitant]
     Active Substance: CALCITRIOL
  12. KEPPRA [Concomitant]
     Active Substance: LEVETIRACETAM
  13. PROBIOTIC [Concomitant]
     Active Substance: PROBIOTICS NOS
  14. ALLOPURINOL. [Concomitant]
     Active Substance: ALLOPURINOL
  15. TYLENOL [Concomitant]
     Active Substance: ACETAMINOPHEN
  16. AMBIEN GENERIC [Concomitant]

REACTIONS (1)
  - Aphasia [None]

NARRATIVE: CASE EVENT DATE: 20200529
